FAERS Safety Report 10553562 (Version 1)
Quarter: 2014Q4

REPORT INFORMATION
  Report Type: Spontaneous
  Country: US (occurrence: None)
  Receive Date: 20141023
  Receipt Date: 20141023
  Transmission Date: 20150529
  Serious: No
  Sender: FDA-Public Use
  Company Number: AP356-01327-SPO-US

PATIENT
  Age: 66 Year
  Sex: Female
  Weight: 100 kg

DRUGS (5)
  1. AMLODIPINE [Suspect]
     Active Substance: AMLODIPINE BESYLATE
  2. ENALAPRIL (ENALAPRIL) [Concomitant]
     Active Substance: ENALAPRIL
  3. LEVOTHYROXINE (LEVOTHYROXINE) [Concomitant]
     Active Substance: LEVOTHYROXINE
  4. ATORVASTATIN (ATORVASTATIN) [Concomitant]
     Active Substance: ATORVASTATIN
  5. BELVIQ [Suspect]
     Active Substance: LORCASERIN HYDROCHLORIDE
     Indication: WEIGHT DECREASED
     Dosage: 20 MG, 2 IN 1 D, ORAL
     Route: 048
     Dates: start: 20140825, end: 20140904

REACTIONS (1)
  - Drug ineffective [None]

NARRATIVE: CASE EVENT DATE: 20140825
